FAERS Safety Report 10039202 (Version 1)
Quarter: 2014Q1

REPORT INFORMATION
  Report Type: Spontaneous
  Country: US (occurrence: US)
  Receive Date: 20140326
  Receipt Date: 20140326
  Transmission Date: 20141002
  Serious: Yes (Hospitalization)
  Sender: FDA-Public Use
  Company Number: US-INCYTE CORPORATION-2014IN000738

PATIENT
  Age: 74 Year
  Sex: Female

DRUGS (12)
  1. JAKAFI [Suspect]
     Dosage: 10 MG, QD
     Route: 065
  2. ASA [Concomitant]
     Dosage: DAILY
  3. ATORVASTATIN [Concomitant]
  4. CALCITONIN [Concomitant]
     Route: 045
  5. VITAMIN D                          /00107901/ [Concomitant]
  6. FERROUS SULFATE [Concomitant]
     Dosage: DAILY
  7. MAG OXIDE [Concomitant]
     Dosage: BID
  8. MULTIVITAMIN                       /00097801/ [Concomitant]
     Dosage: DAILY
  9. WARFARIN [Concomitant]
     Dosage: DAILY
  10. FUROSEMIDE [Concomitant]
     Dosage: DAILY
  11. PANTOPRAZOLE [Concomitant]
     Dosage: DAILY
  12. HYDROCODONE [Concomitant]
     Dosage: 4 DF, DAILY

REACTIONS (1)
  - Thrombosis [Recovering/Resolving]
